FAERS Safety Report 25624906 (Version 1)
Quarter: 2025Q3

REPORT INFORMATION
  Report Type: Spontaneous
  Country: US (occurrence: US)
  Receive Date: 20250731
  Receipt Date: 20250731
  Transmission Date: 20251020
  Serious: No
  Sender: ELI LILLY AND COMPANY
  Company Number: US-ELI_LILLY_AND_COMPANY-US202507023013

PATIENT
  Age: 56 Year
  Sex: Male

DRUGS (2)
  1. BARICITINIB [Suspect]
     Active Substance: BARICITINIB
     Indication: Alopecia areata
     Route: 048
  2. BARICITINIB [Suspect]
     Active Substance: BARICITINIB
     Route: 048
     Dates: start: 20250531

REACTIONS (2)
  - Emotional distress [Unknown]
  - Alopecia [Unknown]
